FAERS Safety Report 9696261 (Version 1)
Quarter: 2013Q4

REPORT INFORMATION
  Report Type: Spontaneous
  Country: US (occurrence: US)
  Receive Date: 20131119
  Receipt Date: 20131119
  Transmission Date: 20140711
  Serious: Yes (Other)
  Sender: FDA-Public Use
  Company Number: US-PFIZER INC-2013327622

PATIENT
  Age: 64 Year
  Sex: Female
  Weight: 72.56 kg

DRUGS (2)
  1. LIPITOR [Suspect]
     Indication: BLOOD CHOLESTEROL INCREASED
     Dosage: 10 MG, 1X/DAY
     Route: 048
     Dates: end: 201309
  2. VITAMIN D [Concomitant]
     Dosage: UNK

REACTIONS (6)
  - Diabetes mellitus [Unknown]
  - Diabetes mellitus [Unknown]
  - Memory impairment [Unknown]
  - Thyroid disorder [Unknown]
  - Weight decreased [Unknown]
  - Malaise [Unknown]
